FAERS Safety Report 4323084-8 (Version None)
Quarter: 2004Q1

REPORT INFORMATION
  Report Type: 
  Country: None (occurrence: None)
  Receive Date: 20040322
  Receipt Date: 20040306
  Transmission Date: 20041129
  Serious: Yes (Other)
  Sender: FDA-Public Use
  Company Number: 2004003550

PATIENT
  Age: 76 Year
  Sex: Female
  Weight: 54.4316 kg

DRUGS (11)
  1. LIPITOR [Suspect]
     Indication: CORONARY ARTERY DISEASE
     Dosage: 10 MG (DAILY); ORAL
     Route: 048
     Dates: start: 20020601, end: 20040101
  2. LIPITOR [Suspect]
     Indication: HYPERLIPIDAEMIA
     Dosage: 10 MG (DAILY); ORAL
     Route: 048
     Dates: start: 20020601, end: 20040101
  3. HYZAAR [Suspect]
     Indication: ILL-DEFINED DISORDER
     Dosage: UNKNOWN (UNKNOWN) ORAL
     Route: 048
     Dates: end: 20030101
  4. ANASTROZOLE (ANASTROZLE) [Suspect]
     Indication: BREAST CANCER
     Dosage: UNKNOWN (DAILY); UNKNOWN
     Route: 065
  5. ENALAPRIL MALEATE [Concomitant]
  6. ISOSORBIDE MONONITRATE [Concomitant]
  7. WARFARIN SODIUM [Concomitant]
  8. METOPROLOL [Concomitant]
  9. SPIRONOLACTONE [Concomitant]
  10. ASPIRIN [Concomitant]
  11. DIGOXIN [Concomitant]

REACTIONS (4)
  - ALOPECIA [None]
  - BREAST CANCER [None]
  - DIZZINESS [None]
  - HYPOTRICHOSIS [None]
